FAERS Safety Report 15633022 (Version 1)
Quarter: 2018Q4

REPORT INFORMATION
  Report Type: Spontaneous
  Country: PL (occurrence: PL)
  Receive Date: 20181119
  Receipt Date: 20181119
  Transmission Date: 20190205
  Serious: Yes (Other)
  Sender: FDA-Public Use
  Company Number: PL-BAYER-2018-209270

PATIENT
  Age: 68 Year
  Sex: Male

DRUGS (2)
  1. ASPIRIN. [Suspect]
     Active Substance: ASPIRIN
     Dosage: UNK
  2. CLOPIDOGREL [Suspect]
     Active Substance: CLOPIDOGREL BISULFATE
     Dosage: UNK

REACTIONS (6)
  - Hemiparesis [None]
  - Haemorrhagic stroke [None]
  - Monoparesis [None]
  - Labelled drug-drug interaction medication error [None]
  - Headache [None]
  - Incorrect product administration duration [None]

NARRATIVE: CASE EVENT DATE: 20180602
